FAERS Safety Report 4978268-2 (Version None)
Quarter: 2006Q2

REPORT INFORMATION
  Report Type: 
  Country: None (occurrence: None)
  Receive Date: 20060417
  Receipt Date: 20060404
  Transmission Date: 20061013
  Serious: Yes (Life-Threatening, Hospitalization)
  Sender: FDA-Public Use
  Company Number: HQWYE073201MAR06

PATIENT
  Age: 79 Year
  Sex: Male
  Weight: 82.17 kg

DRUGS (11)
  1. ZOSYN [Suspect]
     Indication: OSTEOMYELITIS
     Dosage: 4.5 MG 1X PER 8 HR, INTRAVENOUS
     Route: 042
     Dates: start: 20051128, end: 20051226
  2. LISINOPRIL [Concomitant]
  3. QUININE SULFATE [Concomitant]
  4. TAMSULOSIN HCL [Concomitant]
  5. FLUTICASONE PROPIONATE [Concomitant]
  6. SALMETEROL (SALMETEROL) [Concomitant]
  7. GABAPENTIN [Concomitant]
  8. LOVASTATIN [Concomitant]
  9. VANCOMYCIN [Concomitant]
  10. LOVENOX (HEPARIN-PRACTION, SODIUM) [Concomitant]
  11. WARFARIN SODIUM [Concomitant]

REACTIONS (5)
  - HEPATITIS [None]
  - MYALGIA [None]
  - NEUTROPENIA [None]
  - PYREXIA [None]
  - THROMBOCYTOPENIA [None]
